FAERS Safety Report 7771211-2 (Version None)
Quarter: 2011Q3

REPORT INFORMATION
  Report Type: 
  Country: None (occurrence: None)
  Receive Date: 20110922
  Receipt Date: 20110210
  Transmission Date: 20111222
  Serious: No
  Sender: FDA-Public Use
  Company Number: US-ASTRAZENECA-2011SE07957

PATIENT
  Age: 11 Year
  Sex: Female
  Weight: 41.7 kg

DRUGS (1)
  1. SEROQUEL XR [Suspect]
     Indication: ATTENTION DEFICIT/HYPERACTIVITY DISORDER
     Route: 048
     Dates: start: 20101201, end: 20110209

REACTIONS (7)
  - ABDOMINAL PAIN [None]
  - NAUSEA [None]
  - HEADACHE [None]
  - OFF LABEL USE [None]
  - VOMITING [None]
  - ABNORMAL BEHAVIOUR [None]
  - MALAISE [None]
